FAERS Safety Report 5283686-1 (Version None)
Quarter: 2007Q2

REPORT INFORMATION
  Report Type: 
  Country: None (occurrence: None)
  Receive Date: 20070402
  Receipt Date: 20070323
  Transmission Date: 20071010
  Serious: Yes (Disabling)
  Sender: FDA-Public Use
  Company Number: US-KINGPHARMUSA00001-K200700368

PATIENT

DRUGS (5)
  1. ALTACE [Suspect]
     Indication: HYPERTENSION
     Dosage: 5 MG, QD
     Route: 048
     Dates: start: 20061127, end: 20070108
  2. CO-PROXAMOL    /00016701/ [Concomitant]
     Indication: GOUT
     Dosage: 1 DF, QD
     Route: 048
     Dates: start: 20000101
  3. ASPIRIN [Concomitant]
     Indication: ANGINA PECTORIS
     Dosage: 75 MG, UNK
     Route: 048
     Dates: start: 20010903
  4. DICLOFENAC SODIUM [Concomitant]
     Indication: GOUT
     Dosage: 50 MG, UNK
     Route: 048
     Dates: start: 20010903
  5. NITROLINGUAL [Concomitant]
     Indication: ANGINA PECTORIS
     Dosage: 1 DF, PRN
     Route: 060
     Dates: start: 20010903

REACTIONS (2)
  - BLOOD URIC ACID INCREASED [None]
  - GOUT [None]
